FAERS Safety Report 9672517 (Version 1)
Quarter: 2013Q4

REPORT INFORMATION
  Report Type: Other
  Country: IN (occurrence: IN)
  Receive Date: 20131106
  Receipt Date: 20131106
  Transmission Date: 20140711
  Serious: Yes (Life-Threatening, Hospitalization, Other)
  Sender: FDA-Public Use
  Company Number: IN-RB-060180-13

PATIENT
  Age: 40 Year
  Sex: Male

DRUGS (9)
  1. BUPRENORPHINE INJECTION [Suspect]
     Indication: PRODUCT USED FOR UNKNOWN INDICATION
     Dosage: UNKNOWN UNIT DOSE STRENGTH.
     Route: 065
     Dates: start: 2010, end: 2010
  2. BUPRENORPHINE INJECTION [Suspect]
     Dosage: UNKNOWN UNIT DOSE STRENGTH
     Route: 065
     Dates: start: 2010
  3. BUPRENORPHINE INJECTION [Suspect]
     Dosage: UNKNOWN UNIT DOSE STRENGTH; SECOND TIME HE STARTED USING 3.6 MG DAILY.
     Route: 065
  4. BUPRENORPHINE INJECTION [Suspect]
     Dosage: UNKNOWN UNIT DOSE STRENGTH; SECOND TIME HE STARTED USING 7.2 MG DAILY.
     Route: 065
  5. BUPRENORPHINE/NALOXONE UNSPECIFIED [Suspect]
     Indication: PRODUCT USED FOR UNKNOWN INDICATION
     Dosage: UNKNOWN DOSING DETAILS.
     Route: 065
  6. PHENIRAMINE [Suspect]
     Dosage: UNKNOWN UNIT DOSE STRENGTH.
     Route: 065
     Dates: start: 2010, end: 2010
  7. PHENIRAMINE [Suspect]
     Dosage: UNKNOWN UNIT DOSE STRENGTH.
     Route: 065
     Dates: start: 2010
  8. PHENIRAMINE [Suspect]
     Indication: PRODUCT USED FOR UNKNOWN INDICATION
     Dosage: UNKNOWN UNIT DOSE STRENGTH; SECOND TIME ON 227.5 MG DAILY.
     Route: 065
  9. PHENIRAMINE [Suspect]
     Dosage: UNKNOWN UNIT DOSE STRENGTH; SECOND TIME ON 455 MG DAILY.
     Route: 065

REACTIONS (7)
  - Delusion of reference [Recovered/Resolved]
  - Persecutory delusion [Recovered/Resolved]
  - Hallucination, tactile [Recovered/Resolved]
  - Hallucination, visual [Recovered/Resolved]
  - Suicide attempt [Recovered/Resolved]
  - Substance-induced psychotic disorder [Recovered/Resolved]
  - Hepatitis C [Unknown]
